FAERS Safety Report 5581225-9 (Version None)
Quarter: 2007Q4

REPORT INFORMATION
  Report Type: 
  Country: None (occurrence: None)
  Receive Date: 20071226
  Receipt Date: 20071217
  Transmission Date: 20080405
  Serious: Yes (Life-Threatening)
  Sender: FDA-Public Use
  Company Number: 8028607

PATIENT
  Age: 17 Year
  Sex: Female

DRUGS (1)
  1. THEOPHYLLINE [Suspect]

REACTIONS (8)
  - BLOOD CREATINE PHOSPHOKINASE INCREASED [None]
  - EXTRASYSTOLES [None]
  - HYPOKALAEMIA [None]
  - INTENTIONAL OVERDOSE [None]
  - METABOLIC DISORDER [None]
  - MYOGLOBIN BLOOD INCREASED [None]
  - SUICIDE ATTEMPT [None]
  - VENTRICULAR ARRHYTHMIA [None]
